FAERS Safety Report 6200087-X (Version None)
Quarter: 2009Q2

REPORT INFORMATION
  Report Type: 
  Country: None (occurrence: None)
  Receive Date: 20090518
  Receipt Date: 20090416
  Transmission Date: 20091009
  Serious: No
  Sender: FDA-Public Use
  Company Number: WAES 0904USA02804

PATIENT
  Sex: 0

DRUGS (2)
  1. JANUVIA [Suspect]
     Indication: TYPE 2 DIABETES MELLITUS
     Dosage: /PO
     Route: 048
  2. INSULIN [Concomitant]

REACTIONS (2)
  - GASTRIC DISORDER [None]
  - HAEMATOCHEZIA [None]
